FAERS Safety Report 24625150 (Version 5)
Quarter: 2024Q4

REPORT INFORMATION
  Report Type: Spontaneous
  Country: PL (occurrence: PL)
  Receive Date: 20241115
  Receipt Date: 20241205
  Transmission Date: 20250115
  Serious: Yes (Other)
  Sender: MYLAN
  Company Number: PL-Adamed-2024-AER-00425

PATIENT
  Sex: Male

DRUGS (3)
  1. DEXAMETHASONE [Interacting]
     Active Substance: DEXAMETHASONE
     Indication: Lung cancer metastatic
     Dosage: UNK, MODIFICATION OF THE TREATMENT USED
     Route: 065
  2. FENTANYL [Interacting]
     Active Substance: FENTANYL
     Indication: Lung cancer metastatic
     Dosage: UNK, MODIFICATION OF THE TREATMENT USED
     Route: 065
  3. FENTANYL [Interacting]
     Active Substance: FENTANYL
     Indication: Cancer pain

REACTIONS (2)
  - Adrenal insufficiency [Unknown]
  - Drug interaction [Unknown]
